FAERS Safety Report 13309707 (Version 2)
Quarter: 2017Q2

REPORT INFORMATION
  Report Type: Spontaneous
  Country: US (occurrence: US)
  Receive Date: 20170309
  Receipt Date: 20170623
  Transmission Date: 20170830
  Serious: Yes (Death)
  Sender: FDA-Public Use
  Company Number: US-PFIZER INC-2016507840

PATIENT
  Age: 81 Year
  Sex: Female

DRUGS (21)
  1. VITAMIN D3 [Concomitant]
     Active Substance: CHOLECALCIFEROL
     Dosage: UNK
     Dates: start: 2012, end: 2016
  2. PLAVIX [Concomitant]
     Active Substance: CLOPIDOGREL BISULFATE
     Dosage: UNK
     Dates: start: 2007, end: 2016
  3. VITAMIN C [Concomitant]
     Active Substance: ASCORBIC ACID
     Dosage: UNK
     Dates: start: 2012, end: 2016
  4. VITAMIN B12 [Concomitant]
     Active Substance: CYANOCOBALAMIN
     Dosage: UNK
     Dates: start: 2007, end: 2016
  5. LEVOTHYROXINE. [Concomitant]
     Active Substance: LEVOTHYROXINE
     Dosage: UNK
     Route: 048
     Dates: start: 2010, end: 2016
  6. MAG-OX [Concomitant]
     Active Substance: MAGNESIUM OXIDE
     Dosage: UNK
     Dates: start: 2012, end: 2016
  7. LYRICA [Suspect]
     Active Substance: PREGABALIN
     Dosage: 125 MG, DAILY (75 MG AT NITE 1, 50 MG AT MORNING 1)
     Dates: end: 201701
  8. CLARITIN [Concomitant]
     Active Substance: LORATADINE
     Dosage: UNK
     Dates: start: 2012, end: 2016
  9. TIMOPTIC [Concomitant]
     Active Substance: TIMOLOL MALEATE
     Dosage: UNK
     Dates: start: 2008, end: 2016
  10. HYDROCODONE/ACETAMINOPHEN [Concomitant]
     Active Substance: ACETAMINOPHEN\HYDROCODONE
     Indication: PAIN IN EXTREMITY
     Dosage: 1 EVERY 4 TO 6 HRS AS NEEDED
  11. HYDROCODONE/ACETAMINOPHEN [Concomitant]
     Active Substance: ACETAMINOPHEN\HYDROCODONE
     Indication: ARTHRALGIA
  12. ECOTRIN [Concomitant]
     Active Substance: ASPIRIN
     Dosage: UNK
  13. CYANOCOBALAMIN. [Concomitant]
     Active Substance: CYANOCOBALAMIN
     Dosage: UNK
     Dates: start: 2007, end: 2016
  14. ZOCOR [Concomitant]
     Active Substance: SIMVASTATIN
     Dosage: UNK
     Dates: start: 2012, end: 2016
  15. LYRICA [Suspect]
     Active Substance: PREGABALIN
     Indication: CONGENITAL NEUROPATHY
     Dosage: 125 MG, DAILY (50 MG IN AM AND 75 MG IN PM)
     Route: 048
     Dates: start: 20161026
  16. NORVASC [Concomitant]
     Active Substance: AMLODIPINE BESYLATE
     Dosage: UNK
     Dates: start: 2008, end: 2012
  17. LASIX [Concomitant]
     Active Substance: FUROSEMIDE
     Dosage: UNK
     Dates: start: 2015, end: 2016
  18. NORCO [Concomitant]
     Active Substance: ACETAMINOPHEN\HYDROCODONE BITARTRATE
     Dosage: UNK
     Dates: start: 2012, end: 2016
  19. XALATAN [Concomitant]
     Active Substance: LATANOPROST
     Dosage: UNK
     Dates: start: 2010, end: 2016
  20. GLUCOPHAGE [Concomitant]
     Active Substance: METFORMIN HYDROCHLORIDE
     Dosage: UNK
     Dates: start: 2010, end: 2016
  21. LOPRESSOR [Concomitant]
     Active Substance: METOPROLOL TARTRATE
     Dosage: UNK
     Dates: start: 2012, end: 2016

REACTIONS (2)
  - Product use in unapproved indication [Unknown]
  - Death [Fatal]
